FAERS Safety Report 7112398-4 (Version None)
Quarter: 2010Q4

REPORT INFORMATION
  Report Type: 
  Country: None (occurrence: None)
  Receive Date: 20101119
  Receipt Date: 20101014
  Transmission Date: 20110411
  Serious: No
  Sender: FDA-Public Use
  Company Number: A0886735A

PATIENT
  Age: 84 Year
  Sex: Male

DRUGS (6)
  1. AVODART [Suspect]
     Indication: BENIGN PROSTATIC HYPERPLASIA
     Dosage: 1CAP PER DAY
     Route: 048
     Dates: start: 20100601
  2. ASPIRIN [Concomitant]
  3. VERAPAMIL [Concomitant]
  4. ZOCOR [Concomitant]
  5. BENICAR [Concomitant]
  6. INSULIN [Concomitant]

REACTIONS (1)
  - BLOOD URINE PRESENT [None]
